FAERS Safety Report 7034855-1 (Version None)
Quarter: 2010Q4

REPORT INFORMATION
  Report Type: 
  Country: None (occurrence: None)
  Receive Date: 20101008
  Receipt Date: 20100928
  Transmission Date: 20110411
  Serious: Yes (Hospitalization)
  Sender: FDA-Public Use
  Company Number: US-ROCHE-725737

PATIENT
  Sex: Male
  Weight: 95.8 kg

DRUGS (3)
  1. BEVACIZUMAB [Suspect]
     Indication: GLIOBLASTOMA MULTIFORME
     Dosage: 400 MG VIAL AND DOSE GIVEN EACH TIME: 950 MG
     Route: 042
     Dates: start: 20100406, end: 20100824
  2. BEVACIZUMAB [Suspect]
     Dosage: RESTARTED ON UNDETERMINE DATE.
     Route: 042
  3. TEMOZOLOMIDE [Suspect]
     Indication: GLIOBLASTOMA MULTIFORME
     Dosage: 440 MG DAILY FOR 5 DAYS AND ONE FOR 28 DAYS
     Route: 048
     Dates: start: 20100406, end: 20100824

REACTIONS (7)
  - ABDOMINAL PAIN [None]
  - CHOLELITHIASIS [None]
  - HEPATITIS [None]
  - LIPASE INCREASED [None]
  - PANCREATITIS [None]
  - PERITONITIS [None]
  - PYREXIA [None]
